FAERS Safety Report 8061893-2 (Version None)
Quarter: 2012Q1

REPORT INFORMATION
  Report Type: 
  Country: None (occurrence: None)
  Receive Date: 20120123
  Receipt Date: 20120113
  Transmission Date: 20120608
  Serious: No
  Sender: FDA-Public Use
  Company Number: US-JNJFOC-20120105084

PATIENT
  Sex: Male

DRUGS (6)
  1. DURAGESIC-100 [Suspect]
     Indication: MUSCULOSKELETAL PAIN
     Route: 062
     Dates: start: 20120110
  2. VALIUM [Concomitant]
     Indication: PRODUCT USED FOR UNKNOWN INDICATION
     Route: 065
     Dates: start: 20120103, end: 20120108
  3. OXYCONTIN [Concomitant]
     Indication: PAIN
     Route: 065
     Dates: end: 20120108
  4. DURAGESIC-100 [Suspect]
     Indication: BACK PAIN
     Route: 062
     Dates: start: 20120110
  5. CYCLOBENZAPRINE [Concomitant]
     Indication: INJURY
     Route: 065
     Dates: end: 20120108
  6. DURAGESIC-100 [Suspect]
     Indication: PAIN IN EXTREMITY
     Route: 062
     Dates: start: 20120110

REACTIONS (8)
  - PRODUCT QUALITY ISSUE [None]
  - MUSCULOSKELETAL PAIN [None]
  - ACCIDENTAL EXPOSURE [None]
  - BACK PAIN [None]
  - PAIN [None]
  - THERAPEUTIC RESPONSE DECREASED [None]
  - BREAKTHROUGH PAIN [None]
  - WRONG TECHNIQUE IN DRUG USAGE PROCESS [None]
